FAERS Safety Report 11854104 (Version 1)
Quarter: 2015Q4

REPORT INFORMATION
  Report Type: Spontaneous
  Country: JP (occurrence: JP)
  Receive Date: 20151219
  Receipt Date: 20151219
  Transmission Date: 20160305
  Serious: Yes (Hospitalization)
  Sender: FDA-Public Use
  Company Number: JP-GUERBET LLC-1045707

PATIENT
  Age: 29 Year
  Sex: Female
  Weight: 45.1 kg

DRUGS (2)
  1. LIPIODOL [Suspect]
     Active Substance: ETHIODIZED OIL
     Indication: HYSTEROSALPINGOGRAM
     Dates: start: 20150702, end: 20150702
  2. KEFRAL(CEFACLOR) [Concomitant]

REACTIONS (3)
  - Ileus [Recovered/Resolved]
  - Medication residue present [Unknown]
  - Ileus [Recovered/Resolved]

NARRATIVE: CASE EVENT DATE: 20150705
